FAERS Safety Report 9199480 (Version 1)
Quarter: 2013Q1

REPORT INFORMATION
  Report Type: Spontaneous
  Country: US (occurrence: US)
  Receive Date: 20130329
  Receipt Date: 20130329
  Transmission Date: 20140127
  Serious: No
  Sender: FDA-Public Use
  Company Number: US-PFIZER INC-2013098282

PATIENT
  Sex: Female

DRUGS (1)
  1. TIKOSYN [Suspect]
     Indication: CARDIAC DISORDER
     Dosage: UNK
     Dates: start: 20130321

REACTIONS (4)
  - Night sweats [Unknown]
  - Insomnia [Recovered/Resolved]
  - Migraine [Recovered/Resolved]
  - Pruritus [Unknown]
